FAERS Safety Report 8919898 (Version 2)
Quarter: 2012Q4

REPORT INFORMATION
  Report Type: 
  Country: US (occurrence: US)
  Receive Date: 20121121
  Receipt Date: 20121214
  Transmission Date: 20130627
  Serious: Yes (Life-Threatening, Disabling)
  Sender: FDA-Public Use
  Company Number: US-009507513-1211USA006926

PATIENT
  Sex: Female

DRUGS (8)
  1. VICTRELIS [Suspect]
     Indication: HEPATITIS C
     Dosage: 200 mg, 4 capsules 3 times a day
     Route: 048
     Dates: start: 20120810, end: 20120831
  2. PEGASYS [Suspect]
     Dosage: 800 mg, tid
     Dates: start: 20120713
  3. RIBAPAK [Suspect]
     Dosage: 1000 mg
     Route: 048
     Dates: start: 20120713
  4. AMITRIPTYLINE HYDROCHLORIDE [Concomitant]
  5. CELEXA [Concomitant]
  6. CLONAZEPAM [Concomitant]
  7. PROVENTIL [Concomitant]
  8. TRAMADOL HYDROCHLORIDE [Concomitant]

REACTIONS (3)
  - Encephalopathy [Recovered/Resolved]
  - Jaundice [Recovered/Resolved]
  - Pneumonia [Recovered/Resolved]
